FAERS Safety Report 15511893 (Version 1)
Quarter: 2018Q4

REPORT INFORMATION
  Report Type: Report from Study
  Country: US (occurrence: US)
  Receive Date: 20181016
  Receipt Date: 20181016
  Transmission Date: 20190205
  Serious: Yes (Death)
  Sender: FDA-Public Use
  Company Number: US-EXELIXIS-CABO-18015383

PATIENT
  Age: 65 Year
  Sex: Male

DRUGS (1)
  1. CABOMETYX [Suspect]
     Active Substance: CABOZANTINIB S-MALATE
     Indication: RENAL CANCER
     Dosage: 60 MG, QD (EVERY MORNING WITHOUT FOOD)
     Route: 048
     Dates: start: 201807, end: 2018

REACTIONS (7)
  - Oral pain [Unknown]
  - Dysgeusia [Unknown]
  - Dehydration [Unknown]
  - Diarrhoea [Unknown]
  - Death [Fatal]
  - Decreased appetite [Unknown]
  - Weight decreased [Unknown]

NARRATIVE: CASE EVENT DATE: 2018
